FAERS Safety Report 23347349 (Version 5)
Quarter: 2025Q3

REPORT INFORMATION
  Report Type: Spontaneous
  Country: US (occurrence: US)
  Receive Date: 20231228
  Receipt Date: 20250703
  Transmission Date: 20251021
  Serious: No
  Sender: SANOFI AVENTIS
  Company Number: US-SA-SAC20231219000551

PATIENT
  Age: 40 Year
  Sex: Female

DRUGS (2)
  1. DUPIXENT [Suspect]
     Active Substance: DUPILUMAB
     Indication: Dermatitis atopic
     Route: 058
     Dates: start: 20231117, end: 20231117
  2. DUPIXENT [Suspect]
     Active Substance: DUPILUMAB
     Indication: Eczema
     Dosage: 300 MG, QOW
     Route: 058
     Dates: start: 20231201

REACTIONS (8)
  - Skin lesion [Unknown]
  - Dry eye [Not Recovered/Not Resolved]
  - Eczema [Recovering/Resolving]
  - Rash [Recovering/Resolving]
  - Pruritus [Unknown]
  - Skin exfoliation [Unknown]
  - Therapeutic response decreased [Unknown]
  - Eye irritation [Unknown]

NARRATIVE: CASE EVENT DATE: 20230101
